FAERS Safety Report 21302844 (Version 1)
Quarter: 2022Q3

REPORT INFORMATION
  Report Type: Spontaneous
  Country: US (occurrence: None)
  Receive Date: 20220907
  Receipt Date: 20220907
  Transmission Date: 20221026
  Serious: No
  Sender: FDA-Public Use
  Company Number: None

PATIENT
  Age: 78 Year
  Sex: Female
  Weight: 112.08 kg

DRUGS (14)
  1. CAPECITABINE [Suspect]
     Active Substance: CAPECITABINE
     Indication: Malignant neoplasm of thymus
     Dosage: FREQUENCY : TWICE A DAY;?
     Route: 048
     Dates: start: 202208, end: 20220902
  2. CAPECITABINE [Suspect]
     Active Substance: CAPECITABINE
     Indication: Malignant neoplasm of thymus
     Dosage: FREQUENCY : TWICE A DAY;?
     Route: 048
     Dates: start: 202208, end: 20220902
  3. ATORVASTATIN [Concomitant]
  4. BACITRACIN [Concomitant]
     Active Substance: BACITRACIN
  5. DIGOX [Concomitant]
     Active Substance: DIGOXIN
  6. FERROUS SULFATE [Concomitant]
     Active Substance: FERROUS SULFATE
  7. KLOR-CON [Concomitant]
     Active Substance: POTASSIUM CHLORIDE
  8. L-METHYLFOLATE-ALGAE-B12-B6 [Concomitant]
  9. METOPROLOL [Concomitant]
     Active Substance: METOPROLOL
  10. MUPIROCIN [Concomitant]
     Active Substance: MUPIROCIN
  11. ONDANSETRON [Concomitant]
     Active Substance: ONDANSETRON
  12. PANTROPRAZOLE [Concomitant]
  13. PROCHLORPERAZINE [Concomitant]
     Active Substance: PROCHLORPERAZINE
  14. VITAMIN B SUPPLEMENT [Concomitant]

REACTIONS (1)
  - Disease progression [None]
